FAERS Safety Report 7767106-0 (Version None)
Quarter: 2011Q3

REPORT INFORMATION
  Report Type: 
  Country: None (occurrence: None)
  Receive Date: 20110922
  Receipt Date: 20110124
  Transmission Date: 20111222
  Serious: No
  Sender: FDA-Public Use
  Company Number: US-ASTRAZENECA-2011SE04246

PATIENT
  Age: 48 Year
  Sex: Male
  Weight: 106.6 kg

DRUGS (5)
  1. SEROQUEL [Suspect]
     Indication: DEPRESSION
     Route: 048
     Dates: start: 20110122
  2. ELAVIL [Concomitant]
     Indication: DEPRESSION
  3. VICODIN [Concomitant]
     Indication: PAIN
  4. SEROQUEL [Suspect]
     Indication: POST-TRAUMATIC STRESS DISORDER
     Route: 048
     Dates: start: 20110122
  5. PROZAC [Concomitant]
     Indication: DEPRESSION

REACTIONS (4)
  - DISTURBANCE IN ATTENTION [None]
  - TENSION [None]
  - TREMOR [None]
  - EUPHORIC MOOD [None]
